FAERS Safety Report 5857518-4 (Version None)
Quarter: 2008Q3

REPORT INFORMATION
  Report Type: 
  Country: None (occurrence: None)
  Receive Date: 20080818
  Receipt Date: 20080718
  Transmission Date: 20090109
  Serious: No
  Sender: FDA-Public Use
  Company Number: TPA2008A01154

PATIENT
  Age: 84 Year
  Sex: Male

DRUGS (5)
  1. ROZEREM [Suspect]
     Indication: INSOMNIA
     Dosage: 8 MG, AS REQUIRED, PER ORAL
     Route: 048
     Dates: start: 20080618, end: 20080715
  2. CARDAZ (ALL OTHER THERAPEUTIC PRODUCTS) [Concomitant]
  3. LANOXIN [Concomitant]
  4. AVODART [Concomitant]
  5. FLOMAX (ALL OTHER THERAPEUTIC PRODUCTS) [Concomitant]

REACTIONS (5)
  - ABASIA [None]
  - ASTHENIA [None]
  - DYSPNOEA [None]
  - HYPOPHAGIA [None]
  - PRESYNCOPE [None]
